FAERS Safety Report 5760223-6 (Version None)
Quarter: 2008Q2

REPORT INFORMATION
  Report Type: 
  Country: None (occurrence: None)
  Receive Date: 20080602
  Receipt Date: 20080523
  Transmission Date: 20081010
  Serious: Yes (Other)
  Sender: FDA-Public Use
  Company Number: 2008013821

PATIENT
  Age: 54 Year
  Sex: Female
  Weight: 61.2356 kg

DRUGS (1)
  1. LISTERINE WHITENING QUICK DISSOLVING STRIPS (NO ACTIVE INGREDIENT) [Suspect]
     Indication: DENTAL CARE
     Dosage: TWICE DAILY (2 IN 1 D), ORAL
     Route: 048
     Dates: start: 20071222, end: 20071223

REACTIONS (7)
  - APHTHOUS STOMATITIS [None]
  - APPLICATION SITE BURN [None]
  - HAEMORRHAGE [None]
  - INSOMNIA [None]
  - OPPORTUNISTIC INFECTION [None]
  - ORAL PAIN [None]
  - VIRAL INFECTION [None]
